FAERS Safety Report 10997591 (Version 1)
Quarter: 2015Q2

REPORT INFORMATION
  Report Type: Spontaneous
  Country: US (occurrence: US)
  Receive Date: 20150408
  Receipt Date: 20150408
  Transmission Date: 20150821
  Serious: Yes (Hospitalization)
  Sender: FDA-Public Use
  Company Number: US-ASTRAZENECA-2015SE31871

PATIENT
  Age: 51 Year
  Sex: Male

DRUGS (1)
  1. BRILINTA [Suspect]
     Active Substance: TICAGRELOR
     Dosage: TWO TIMES A DAY
     Route: 048
     Dates: start: 201503

REACTIONS (2)
  - Chest pain [Unknown]
  - Pericarditis [Unknown]

NARRATIVE: CASE EVENT DATE: 201503
